FAERS Safety Report 8175514-1 (Version None)
Quarter: 2012Q1

REPORT INFORMATION
  Report Type: 
  Country: None (occurrence: None)
  Receive Date: 20120229
  Receipt Date: 20120223
  Transmission Date: 20120608
  Serious: Yes (Death, Hospitalization)
  Sender: FDA-Public Use
  Company Number: FR-MERCK-1202USA03934

PATIENT
  Age: 76 Year
  Sex: Male

DRUGS (2)
  1. PRIMAXIN [Suspect]
     Indication: ENTEROCOCCAL INFECTION
     Route: 065
     Dates: start: 20111129, end: 20111205
  2. ZYVOX [Concomitant]
     Indication: ENTEROCOCCAL INFECTION
     Route: 065
     Dates: start: 20111129, end: 20111208

REACTIONS (1)
  - CONVULSION [None]
